FAERS Safety Report 25830516 (Version 1)
Quarter: 2025Q3

REPORT INFORMATION
  Report Type: Spontaneous
  Country: US (occurrence: US)
  Receive Date: 20250922
  Receipt Date: 20250922
  Transmission Date: 20251020
  Serious: Yes (Life-Threatening, Other)
  Sender: CHEPLAPHARM
  Company Number: US-MLMSERVICE-20250904-PI631361-00077-1

PATIENT
  Age: 54 Year
  Sex: Female

DRUGS (1)
  1. CAPECITABINE [Suspect]
     Active Substance: CAPECITABINE
     Indication: Breast cancer

REACTIONS (5)
  - Toxic leukoencephalopathy [Recovered/Resolved]
  - Seizure [Recovered/Resolved]
  - Leukopenia [Unknown]
  - Neurotoxicity [Unknown]
  - Hypomagnesaemia [Unknown]
